FAERS Safety Report 5522581-7 (Version None)
Quarter: 2007Q4

REPORT INFORMATION
  Report Type: 
  Country: None (occurrence: None)
  Receive Date: 20071120
  Receipt Date: 20071108
  Transmission Date: 20080405
  Serious: Yes (Hospitalization)
  Sender: FDA-Public Use
  Company Number: FR-PFIZER INC-2007094746

PATIENT
  Age: 40 Year
  Sex: Female

DRUGS (5)
  1. RELPAX [Suspect]
     Indication: HEADACHE
     Route: 048
  2. DEXTROPROPOXYPHENE [Suspect]
     Indication: HEADACHE
     Route: 048
  3. CAFFEINE/CODEINE PHOSPHATE/PARACETAMOL [Suspect]
     Indication: HEADACHE
     Route: 048
  4. TIEMONIUM [Suspect]
     Indication: HEADACHE
     Route: 048
  5. CAFFEINE/OPIUM/PARACETAMOL [Suspect]
     Route: 048
     Dates: end: 20070319

REACTIONS (1)
  - DRUG DEPENDENCE [None]
